FAERS Safety Report 20230637 (Version 1)
Quarter: 2021Q4

REPORT INFORMATION
  Report Type: Other
  Country: US (occurrence: US)
  Receive Date: 20211227
  Receipt Date: 20211227
  Transmission Date: 20220303
  Serious: No
  Sender: FDA-Public Use
  Company Number: US-NEUROCRINE BIOSCIENCES INC.-2021NBI07336

PATIENT

DRUGS (1)
  1. INGREZZA [Suspect]
     Active Substance: VALBENAZINE
     Indication: Tardive dyskinesia
     Dosage: 60 MILLIGRAM, QD
     Route: 048
     Dates: start: 20211118, end: 20211215

REACTIONS (6)
  - Pain [Unknown]
  - Tic [Unknown]
  - Drooling [Unknown]
  - Insomnia [Unknown]
  - Vision blurred [Unknown]
  - Balance disorder [Unknown]

NARRATIVE: CASE EVENT DATE: 20211201
